FAERS Safety Report 5392775-2 (Version None)
Quarter: 2007Q3

REPORT INFORMATION
  Report Type: 
  Country: None (occurrence: None)
  Receive Date: 20070718
  Receipt Date: 20070706
  Transmission Date: 20080115
  Serious: Yes (Other)
  Sender: FDA-Public Use
  Company Number: GXKR2006GB06880

PATIENT
  Age: 67 Year
  Sex: Male

DRUGS (10)
  1. DIHYDROCODEINE (NGX)(DIHYDROCODEINE) UNKNOWN [Suspect]
  2. FLUOXETINE [Suspect]
     Indication: DEPRESSION
     Dosage: 20 MG, BID
  3. ACOMPLIA(RIMONABANT) [Suspect]
     Indication: DIABETES MELLITUS
     Dosage: 20 MG, QD, ORAL
     Route: 048
     Dates: start: 20060722, end: 20060815
  4. ACETYLSALICYLIC ACID SRT [Concomitant]
  5. GLICLAZIDE (GLICLAZIDE) [Concomitant]
  6. METFORMIN HCL [Concomitant]
  7. PERINDOPRIL ERBUMINE [Concomitant]
  8. ROSIGLITAZONE [Concomitant]
  9. SIMVASTATIN [Concomitant]
  10. TILDEM (DILTIAZEM HYDROCHLORIDE) [Concomitant]

REACTIONS (9)
  - AGITATION [None]
  - ANGER [None]
  - CONFUSIONAL STATE [None]
  - DELUSION [None]
  - DRUG WITHDRAWAL SYNDROME [None]
  - FEELING JITTERY [None]
  - HALLUCINATIONS, MIXED [None]
  - IRRITABILITY [None]
  - PSYCHOTIC DISORDER [None]
